FAERS Safety Report 11786825 (Version 2)
Quarter: 2016Q1

REPORT INFORMATION
  Report Type: Report from Study
  Country: US (occurrence: US)
  Receive Date: 20151130
  Receipt Date: 20160113
  Transmission Date: 20160525
  Serious: Yes (Other)
  Sender: FDA-Public Use
  Company Number: US-009507513-1511USA015262

PATIENT

DRUGS (4)
  1. GAVISCON (CALCIUM CARBONATE (+) SODIUM ALGINATE (+) SODIUM BICARBONATE [Suspect]
     Active Substance: CALCIUM CARBONATE\SODIUM ALGINATE\SODIUM BICARBONATE
  2. TALAZOPARIB [Suspect]
     Active Substance: TALAZOPARIB
     Indication: CHEMOTHERAPY
  3. TEMODAR [Suspect]
     Active Substance: TEMOZOLOMIDE
     Indication: NEOPLASM
     Dosage: }OR=25 MG/M2, DAYS 1-5, CYCLICAL
     Route: 048
  4. TALAZOPARIB [Suspect]
     Active Substance: TALAZOPARIB
     Indication: NEOPLASM
     Dosage: UNK, QD
     Route: 048

REACTIONS (1)
  - Thrombocytopenia [Unknown]
